FAERS Safety Report 5374685-X (Version None)
Quarter: 2007Q2

REPORT INFORMATION
  Report Type: 
  Country: None (occurrence: None)
  Receive Date: 20070629
  Receipt Date: 20070620
  Transmission Date: 20071010
  Serious: Yes (Hospitalization)
  Sender: FDA-Public Use
  Company Number: FR-JNJFOC-20070604889

PATIENT
  Sex: Male
  Weight: 86 kg

DRUGS (3)
  1. REMICADE [Suspect]
     Indication: CROHN'S DISEASE
     Route: 042
  2. AZATHIOPRINE SODIUM [Concomitant]
     Indication: CROHN'S DISEASE
  3. SOLU-MEDROL [Concomitant]
     Indication: CROHN'S DISEASE

REACTIONS (1)
  - DERMATOMYOSITIS [None]
